FAERS Safety Report 12864587 (Version 1)
Quarter: 2016Q4

REPORT INFORMATION
  Report Type: Spontaneous
  Country: UA (occurrence: UA)
  Receive Date: 20161020
  Receipt Date: 20161020
  Transmission Date: 20170207
  Serious: Yes (Hospitalization)
  Sender: FDA-Public Use
  Company Number: UA-ASTRAZENECA-2016SF09431

PATIENT
  Sex: Female

DRUGS (2)
  1. BETALOC ZOK [Suspect]
     Active Substance: METOPROLOL SUCCINATE
     Route: 048
  2. BETALOC [Suspect]
     Active Substance: METOPROLOL TARTRATE
     Dosage: ONE MG/ML AMPOULES 5ML
     Route: 042

REACTIONS (2)
  - Arrhythmia [Unknown]
  - Drug ineffective [Unknown]

NARRATIVE: CASE EVENT DATE: 20161012
